FAERS Safety Report 8560245-6 (Version None)
Quarter: 2012Q3

REPORT INFORMATION
  Report Type: 
  Country: None (occurrence: None)
  Receive Date: 20120802
  Receipt Date: 20120724
  Transmission Date: 20120928
  Serious: Yes (Hospitalization)
  Sender: FDA-Public Use
  Company Number: JP-ROCHE-1031736

PATIENT
  Sex: Male

DRUGS (2)
  1. LASIX [Suspect]
     Indication: PRODUCT USED FOR UNKNOWN INDICATION
     Dosage: DOSAGE IS UNCERTAIN.
     Route: 065
  2. MIRCERA [Suspect]
     Indication: NEPHROGENIC ANAEMIA
     Route: 058
     Dates: start: 20111116, end: 20111116

REACTIONS (5)
  - PLATELET COUNT DECREASED [None]
  - EOSINOPHIL COUNT INCREASED [None]
  - RASH [None]
  - ULCER [None]
  - LYMPHOCYTE STIMULATION TEST POSITIVE [None]
